FAERS Safety Report 6619160-7 (Version None)
Quarter: 2010Q1

REPORT INFORMATION
  Report Type: 
  Country: None (occurrence: None)
  Receive Date: 20100305
  Receipt Date: 20100305
  Transmission Date: 20100710
  Serious: Yes (Hospitalization)
  Sender: FDA-Public Use
  Company Number: None

PATIENT
  Sex: Female
  Weight: 65 kg

DRUGS (3)
  1. DOXORUBICIN HYDROCHLORIDE [Suspect]
     Dosage: 126 MG
  2. VINCRISTINE SULFATE [Suspect]
     Dosage: 6 MG
  3. DEXAMETHASONE [Suspect]
     Dosage: 224 MG

REACTIONS (17)
  - BLOOD CULTURE POSITIVE [None]
  - CARDIAC ARREST [None]
  - CHILLS [None]
  - DRUG DOSE OMISSION [None]
  - GENERAL PHYSICAL HEALTH DETERIORATION [None]
  - HEADACHE [None]
  - INFLUENZA SEROLOGY POSITIVE [None]
  - LETHARGY [None]
  - NO THERAPEUTIC RESPONSE [None]
  - PANCYTOPENIA [None]
  - PNEUMONIA [None]
  - PNEUMOTHORAX [None]
  - SEPTIC SHOCK [None]
  - STREPTOCOCCAL INFECTION [None]
  - SUBCUTANEOUS EMPHYSEMA [None]
  - TREMOR [None]
  - UNEVALUABLE EVENT [None]
